FAERS Safety Report 6440505-5 (Version None)
Quarter: 2009Q4

REPORT INFORMATION
  Report Type: 
  Country: None (occurrence: None)
  Receive Date: 20091113
  Receipt Date: 20091102
  Transmission Date: 20100525
  Serious: Yes (Other)
  Sender: FDA-Public Use
  Company Number: US-BAUSCH-2009BL005099

PATIENT
  Age: 19 Year
  Sex: Male

DRUGS (6)
  1. BESIVANCE [Suspect]
     Indication: ULCERATIVE KERATITIS
     Route: 047
     Dates: start: 20090920, end: 20090921
  2. BESIVANCE [Suspect]
     Indication: KERATITIS BACTERIAL
     Route: 047
     Dates: start: 20090920, end: 20090921
  3. BESIVANCE [Suspect]
     Indication: OFF LABEL USE
     Route: 047
     Dates: start: 20090920, end: 20090921
  4. BESIVANCE [Suspect]
     Route: 047
     Dates: start: 20090920, end: 20090921
  5. BESIVANCE [Suspect]
     Route: 047
     Dates: start: 20090920, end: 20090921
  6. BESIVANCE [Suspect]
     Route: 047
     Dates: start: 20090920, end: 20090921

REACTIONS (4)
  - CONDITION AGGRAVATED [None]
  - HYPOPYON [None]
  - INAPPROPRIATE SCHEDULE OF DRUG ADMINISTRATION [None]
  - ULCERATIVE KERATITIS [None]
